FAERS Safety Report 18809922 (Version 1)
Quarter: 2021Q1

REPORT INFORMATION
  Report Type: Spontaneous
  Country: CN (occurrence: CN)
  Receive Date: 20210129
  Receipt Date: 20210129
  Transmission Date: 20210419
  Serious: Yes (Other)
  Sender: FDA-Public Use
  Company Number: CN-BAXTER-2021BAX001851

PATIENT
  Age: 63 Year
  Sex: Female
  Weight: 51 kg

DRUGS (6)
  1. ENDOXAN [Suspect]
     Active Substance: CYCLOPHOSPHAMIDE
     Indication: BREAST CANCER
     Dosage: 0.9% SODIUM CHLORIDE + CYCLOPHOSPHAMIDE 800 MG
     Route: 041
     Dates: start: 20210107, end: 20210107
  2. DOCETAXEL. [Suspect]
     Active Substance: DOCETAXEL
     Dosage: 0.9% SODIUM CHLORIDE 250 ML + DOCETAXEL INJECTION 80 MG
     Route: 041
     Dates: start: 20210107, end: 20210107
  3. DOCETAXEL. [Suspect]
     Active Substance: DOCETAXEL
     Indication: BREAST CANCER
     Dosage: 0.9% SODIUM CHLORIDE 250 ML + DOCETAXEL INJECTION 20 MG
     Route: 041
     Dates: start: 20210107, end: 20210107
  4. 0.9% SODIUM CHLORIDE INJECTION [Suspect]
     Active Substance: SODIUM CHLORIDE
     Dosage: 0.9% SODIUM CHLORIDE + CYCLOPHOSPHAMIDE 800 MG
     Route: 041
     Dates: start: 20210107, end: 20210107
  5. 0.9% SODIUM CHLORIDE INJECTION [Suspect]
     Active Substance: SODIUM CHLORIDE
     Indication: MEDICATION DILUTION
     Dosage: 0.9% SODIUM CHLORIDE + DOCETAXEL INJECTION 20 MG
     Route: 041
     Dates: start: 20210107, end: 20210107
  6. 0.9% SODIUM CHLORIDE INJECTION [Suspect]
     Active Substance: SODIUM CHLORIDE
     Dosage: 0.9% SODIUM CHLORIDE + DOCETAXEL INJECTION 80 MG
     Route: 041
     Dates: start: 20210107, end: 20210107

REACTIONS (1)
  - Myelosuppression [Recovered/Resolved]

NARRATIVE: CASE EVENT DATE: 20210112
